FAERS Safety Report 6744878-5 (Version None)
Quarter: 2010Q2

REPORT INFORMATION
  Report Type: 
  Country: None (occurrence: None)
  Receive Date: 20100527
  Receipt Date: 20100419
  Transmission Date: 20101027
  Serious: No
  Sender: FDA-Public Use
  Company Number: US-BRISTOL-MYERS SQUIBB COMPANY-15067531

PATIENT
  Age: 94 Year
  Sex: Female
  Weight: 54 kg

DRUGS (17)
  1. ONGLYZA [Suspect]
     Indication: TYPE 2 DIABETES MELLITUS
     Route: 048
     Dates: start: 20100301, end: 20100408
  2. ALLEGRA [Concomitant]
  3. AMARYL [Concomitant]
  4. PLAVIX [Concomitant]
  5. COREG [Concomitant]
  6. SYNTHROID [Concomitant]
  7. PREVACID [Concomitant]
  8. LISINOPRIL [Concomitant]
  9. COZAAR [Concomitant]
  10. ISORDIL [Concomitant]
  11. FERROUS SULFATE TAB [Concomitant]
  12. LASIX [Concomitant]
  13. CENTRUM [Concomitant]
  14. OS-CAL [Concomitant]
  15. ASPIRIN [Concomitant]
  16. RESTORIL [Concomitant]
  17. MIRTAZAPINE [Concomitant]

REACTIONS (2)
  - FURUNCLE [None]
  - THROAT IRRITATION [None]
